FAERS Safety Report 11927240 (Version 1)
Quarter: 2016Q1

REPORT INFORMATION
  Report Type: Spontaneous
  Country: US (occurrence: None)
  Receive Date: 20160115
  Receipt Date: 20160115
  Transmission Date: 20160526
  Serious: Yes (Other)
  Sender: FDA-Public Use
  Company Number: None

PATIENT
  Age: 27 Year
  Sex: Female

DRUGS (1)
  1. HUMIRA [Suspect]
     Active Substance: ADALIMUMAB
     Indication: COLITIS ULCERATIVE
     Dosage: INJECTABLE ?EVERY OTHER WEEK
     Route: 058
     Dates: start: 20151130

REACTIONS (2)
  - Injection site pain [None]
  - Nasopharyngitis [None]

NARRATIVE: CASE EVENT DATE: 20160106
